FAERS Safety Report 26183903 (Version 1)
Quarter: 2025Q4

REPORT INFORMATION
  Report Type: Spontaneous
  Country: US (occurrence: US)
  Receive Date: 20251222
  Receipt Date: 20251222
  Transmission Date: 20260117
  Serious: No
  Sender: AUROBINDO
  Company Number: US-AUROBINDO-AUR-APL-2025-048983

PATIENT
  Age: 35 Year
  Sex: Female

DRUGS (1)
  1. AMOXICILLIN [Suspect]
     Active Substance: AMOXICILLIN
     Indication: Pharyngitis streptococcal
     Dosage: 500 MILLIGRAM, TWO TIMES A DAY
     Route: 061
     Dates: start: 20250910

REACTIONS (4)
  - Pain [Unknown]
  - Migraine [Unknown]
  - Hypoaesthesia [Unknown]
  - Pain in extremity [Unknown]
